FAERS Safety Report 8992203 (Version 1)
Quarter: 2012Q4

REPORT INFORMATION
  Report Type: 
  Country: US (occurrence: US)
  Receive Date: 20121231
  Receipt Date: 20121231
  Transmission Date: 20130627
  Serious: No
  Sender: FDA-Public Use
  Company Number: US-VERTEX PHARMACEUTICALS INC.-2012-026760

PATIENT
  Sex: Male
  Weight: 105 kg

DRUGS (5)
  1. VX-950 (TELAPREVIR) [Suspect]
     Indication: HEPATITIS C
     Dosage: 750 mg, tid
     Route: 048
     Dates: start: 20120510
  2. RIBASPHERE [Suspect]
     Indication: HEPATITIS C
     Dosage: 600 mg, bid
     Route: 048
     Dates: start: 20121012
  3. PEGINTRON                          /01543001/ [Suspect]
     Indication: HEPATITIS C
     Dosage: 150 ?g, weekly
     Route: 058
     Dates: start: 20120510
  4. HYDROCHLORTHIAZID [Concomitant]
     Dosage: 0.5 DF, qd
     Route: 048
     Dates: start: 20120511
  5. OMEPRAZOLE [Concomitant]
     Dosage: 40 mg, qd
     Route: 048
     Dates: start: 20120511

REACTIONS (1)
  - Rash [Unknown]
